FAERS Safety Report 7952745-4 (Version None)
Quarter: 2011Q4

REPORT INFORMATION
  Report Type: 
  Country: None (occurrence: None)
  Receive Date: 20111201
  Receipt Date: 20111121
  Transmission Date: 20120403
  Serious: Yes (Hospitalization)
  Sender: FDA-Public Use
  Company Number: US-BAYER-2011-042742

PATIENT
  Age: 46 Year
  Sex: Female
  Weight: 95 kg

DRUGS (1)
  1. YAZ [Suspect]
     Indication: ANXIETY
     Dosage: UNK
     Dates: start: 20090301, end: 20090601

REACTIONS (17)
  - MYOCARDIAL INFARCTION [None]
  - ANXIETY [None]
  - PSYCHOLOGICAL TRAUMA [None]
  - ACUTE CORONARY SYNDROME [None]
  - VENTRICULAR FIBRILLATION [None]
  - INJURY [None]
  - PULMONARY INFARCTION [None]
  - PAIN [None]
  - RIGHT ATRIAL DILATATION [None]
  - ANTIPHOSPHOLIPID ANTIBODIES POSITIVE [None]
  - URINARY TRACT INFECTION [None]
  - FEAR [None]
  - PULMONARY EMBOLISM [None]
  - CARDIAC ARREST [None]
  - ANHEDONIA [None]
  - VENTRICULAR TACHYCARDIA [None]
  - PERICARDIAL EFFUSION [None]
